FAERS Safety Report 8088806-1 (Version None)
Quarter: 2012Q1

REPORT INFORMATION
  Report Type: 
  Country: None (occurrence: None)
  Receive Date: 20120128
  Receipt Date: 20110405
  Transmission Date: 20120608
  Serious: No
  Sender: FDA-Public Use
  Company Number: US-ABBOTT-11P-163-0717003-00

PATIENT
  Sex: Male
  Weight: 105.78 kg

DRUGS (2)
  1. HUMIRA [Suspect]
     Indication: PSORIATIC ARTHROPATHY
     Dates: start: 20090501
  2. HUMIRA [Suspect]
     Indication: PSORIASIS

REACTIONS (4)
  - DIARRHOEA [None]
  - PAIN [None]
  - HEADACHE [None]
  - COUGH [None]
